FAERS Safety Report 4700776-X (Version None)
Quarter: 2005Q2

REPORT INFORMATION
  Report Type: 
  Country: None (occurrence: None)
  Receive Date: 20050624
  Receipt Date: 20040802
  Transmission Date: 20051028
  Serious: Yes (Death)
  Sender: FDA-Public Use
  Company Number: 376553

PATIENT
  Age: 61 Year
  Sex: Female
  Weight: 91.6 kg

DRUGS (1)
  1. XELODA [Suspect]
     Indication: BREAST CANCER
     Dates: start: 20040615

REACTIONS (1)
  - BREAST CANCER METASTATIC [None]
